FAERS Safety Report 5430065-X (Version None)
Quarter: 2007Q3

REPORT INFORMATION
  Report Type: 
  Country: None (occurrence: None)
  Receive Date: 20070829
  Receipt Date: 20070821
  Transmission Date: 20080115
  Serious: Yes (Other)
  Sender: FDA-Public Use
  Company Number: US-PFIZER INC-2007069732

PATIENT
  Sex: Female
  Weight: 104.3 kg

DRUGS (5)
  1. ZOLOFT [Suspect]
     Indication: DEPRESSION
     Dosage: DAILY DOSE:200MG-TEXT:200MG  DAILY TDD:200MG
  2. ZOLOFT [Suspect]
     Indication: EATING DISORDER
  3. PROVIGIL [Concomitant]
  4. KLONOPIN [Concomitant]
  5. ALLEGRA [Concomitant]

REACTIONS (2)
  - DYSPEPSIA [None]
  - GASTRIC BANDING [None]
